FAERS Safety Report 6389369-9 (Version None)
Quarter: 2009Q4

REPORT INFORMATION
  Report Type: 
  Country: None (occurrence: None)
  Receive Date: 20091006
  Receipt Date: 20090924
  Transmission Date: 20100525
  Serious: Yes (Other)
  Sender: FDA-Public Use
  Company Number: US-JNJFOC-20090908872

PATIENT
  Age: 2 Year
  Weight: 14.52 kg

DRUGS (2)
  1. TYLENOL (CAPLET) [Suspect]
     Route: 048
     Dates: start: 20090901, end: 20090923
  2. TYLENOL (CAPLET) [Suspect]
     Indication: PYREXIA
     Dosage: UNKNOWN DOSE GIVEN 4 TIMES IN 2 WEEKS
     Route: 048
     Dates: start: 20090901, end: 20090923

REACTIONS (2)
  - TRANSMISSION OF AN INFECTIOUS AGENT VIA A MEDICINAL PRODUCT [None]
  - VIRAL RASH [None]
